FAERS Safety Report 13657260 (Version 4)
Quarter: 2017Q3

REPORT INFORMATION
  Report Type: Spontaneous
  Country: US (occurrence: US)
  Receive Date: 20170615
  Receipt Date: 20170802
  Transmission Date: 20171127
  Serious: No
  Sender: FDA-Public Use
  Company Number: US-ASTRAZENECA-2017SE62292

PATIENT
  Sex: Female

DRUGS (1)
  1. TUDORZA PRESSAIR [Suspect]
     Active Substance: ACLIDINIUM BROMIDE
     Indication: CHRONIC OBSTRUCTIVE PULMONARY DISEASE
     Dosage: 400MCG, 1 INHALATION TWICE DAILY (60 METERED DOSE INHALER)
     Route: 055
     Dates: start: 201705

REACTIONS (13)
  - Confusional state [Unknown]
  - Gait disturbance [Unknown]
  - Hypoaesthesia [Unknown]
  - Swelling [Unknown]
  - Dyspnoea [Unknown]
  - Inappropriate schedule of drug administration [Unknown]
  - Intentional product misuse [Unknown]
  - Drug dose omission [Unknown]
  - Tongue blistering [Unknown]
  - Lip blister [Unknown]
  - Feeling abnormal [Unknown]
  - Product quality issue [Unknown]
  - Blister [Unknown]

NARRATIVE: CASE EVENT DATE: 201706
